FAERS Safety Report 4894571-9 (Version None)
Quarter: 2006Q1

REPORT INFORMATION
  Report Type: 
  Country: None (occurrence: None)
  Receive Date: 20060127
  Receipt Date: 20040921
  Transmission Date: 20060701
  Serious: Yes (Other)
  Sender: FDA-Public Use
  Company Number: FR-MERCK-0409FRA00089

PATIENT
  Age: 68 Year
  Sex: Female

DRUGS (3)
  1. TIMOPTIC-XE [Suspect]
     Indication: GLAUCOMA
     Route: 047
     Dates: start: 19960101, end: 20041101
  2. TIMOPTIC-XE [Suspect]
     Route: 047
     Dates: start: 20050101
  3. DIOSMIN [Concomitant]
     Indication: VEIN DISORDER
     Route: 048

REACTIONS (2)
  - ALOPECIA [None]
  - PULMONARY MASS [None]
